FAERS Safety Report 5915359-3 (Version None)
Quarter: 2008Q4

REPORT INFORMATION
  Report Type: 
  Country: None (occurrence: None)
  Receive Date: 20081010
  Receipt Date: 20080925
  Transmission Date: 20090506
  Serious: Yes (Hospitalization)
  Sender: FDA-Public Use
  Company Number: US-BAUSCH-2008BL004171

PATIENT
  Age: 35 Year
  Sex: Female
  Weight: 61 kg

DRUGS (3)
  1. PHENYLEPHRINE [Suspect]
     Indication: HYPOTENSION
  2. EPHEDRINE HCL 1PC SOL [Suspect]
     Indication: HYPOTENSION
     Route: 042
  3. HEPARIN [Concomitant]
     Route: 058

REACTIONS (3)
  - BLOOD PRESSURE INCREASED [None]
  - HAEMORRHAGIC STROKE [None]
  - HEADACHE [None]
